FAERS Safety Report 8579517-4 (Version None)
Quarter: 2012Q3

REPORT INFORMATION
  Report Type: 
  Country: None (occurrence: None)
  Receive Date: 20120808
  Receipt Date: 20120802
  Transmission Date: 20120928
  Serious: Yes (Life-Threatening, Hospitalization)
  Sender: FDA-Public Use
  Company Number: RU-VIIV HEALTHCARE LIMITED-B0821350A

PATIENT
  Sex: Female
  Weight: 48 kg

DRUGS (2)
  1. COMBIVIR [Suspect]
     Indication: HIV INFECTION
     Dosage: 300MG PER DAY
     Route: 048
     Dates: start: 20120718, end: 20120728
  2. REYATAZ [Concomitant]
     Indication: HIV INFECTION
     Dosage: 400MG PER DAY
     Route: 048
     Dates: start: 20120718

REACTIONS (2)
  - RASH [None]
  - FACE OEDEMA [None]
